FAERS Safety Report 20784710 (Version 2)
Quarter: 2022Q4

REPORT INFORMATION
  Report Type: Report from Study
  Country: US (occurrence: US)
  Receive Date: 20220504
  Receipt Date: 20221110
  Transmission Date: 20230112
  Serious: Yes (Death, Hospitalization)
  Sender: FDA-Public Use
  Company Number: US-BAUSCH-BL-2019-003297

PATIENT
  Age: 66 Year
  Sex: Female
  Weight: 86.714 kg

DRUGS (17)
  1. XIFAXAN [Suspect]
     Active Substance: RIFAXIMIN
     Indication: Hepatic encephalopathy
     Dosage: 4 YEARS AGO FROM INITIAL REPORT
     Route: 048
     Dates: start: 2015
  2. XIFAXAN [Suspect]
     Active Substance: RIFAXIMIN
     Dosage: OVER FOUR YEARS AGO (2014 OR 2015)
     Route: 048
     Dates: end: 20201207
  3. XIFAXAN [Suspect]
     Active Substance: RIFAXIMIN
     Dosage: END OF DECEMBER, IT WAS AN EMERGENCY SUPPLY
     Route: 048
     Dates: start: 202103
  4. XIFAXAN [Suspect]
     Active Substance: RIFAXIMIN
     Route: 048
  5. PROPRANOLOL [Concomitant]
     Active Substance: PROPRANOLOL HYDROCHLORIDE
     Indication: Product used for unknown indication
  6. LEVOTHYROXINE [Concomitant]
     Active Substance: LEVOTHYROXINE
     Indication: Product used for unknown indication
  7. FUROSEMIDE [Concomitant]
     Active Substance: FUROSEMIDE
     Indication: Product used for unknown indication
  8. LACTULOSE [Concomitant]
     Active Substance: LACTULOSE
     Indication: Product used for unknown indication
     Route: 048
  9. LACTULOSE [Concomitant]
     Active Substance: LACTULOSE
     Indication: Hepatic encephalopathy
     Route: 048
     Dates: start: 20201209, end: 20210110
  10. LACTULOSE [Concomitant]
     Active Substance: LACTULOSE
     Dates: start: 202103, end: 20210324
  11. PANTOPRAZOLE [Concomitant]
     Active Substance: PANTOPRAZOLE
     Indication: Product used for unknown indication
  12. CIPROFLOXACIN [Concomitant]
     Active Substance: CIPROFLOXACIN
     Indication: Product used for unknown indication
  13. ERGOCALCIFEROL [Concomitant]
     Active Substance: ERGOCALCIFEROL
     Indication: Product used for unknown indication
  14. IRON [Concomitant]
     Active Substance: IRON
     Indication: Blood iron decreased
     Dosage: AS DIRECTED
     Route: 048
  15. VITAMIN C [Concomitant]
     Active Substance: ASCORBIC ACID
     Indication: Product used for unknown indication
  16. MAGNESIUM [Concomitant]
     Active Substance: MAGNESIUM
     Indication: Blood magnesium decreased
     Dosage: AS DIRECTED
     Route: 048
  17. PROPANOL (PROPRANOLOL HYDROCHLORIDE) [Concomitant]
     Active Substance: PROPRANOLOL HYDROCHLORIDE
     Indication: Product used for unknown indication
     Dosage: PRESSURE PILL

REACTIONS (8)
  - General physical health deterioration [Fatal]
  - Ammonia increased [Recovering/Resolving]
  - Blood glucose increased [Recovering/Resolving]
  - Confusional state [Recovering/Resolving]
  - Delirium [Recovered/Resolved]
  - Decreased appetite [Recovered/Resolved]
  - Inability to afford medication [Unknown]
  - Product use issue [Unknown]

NARRATIVE: CASE EVENT DATE: 20190101
